FAERS Safety Report 7486476-4 (Version None)
Quarter: 2011Q2

REPORT INFORMATION
  Report Type: 
  Country: None (occurrence: None)
  Receive Date: 20110516
  Receipt Date: 20110516
  Transmission Date: 20111010
  Serious: No
  Sender: FDA-Public Use
  Company Number: None

PATIENT
  Age: 54 Year
  Sex: Female
  Weight: 55.3388 kg

DRUGS (4)
  1. XANAX [Suspect]
     Dates: start: 20101215, end: 20101216
  2. TRAMADOL HCL [Suspect]
  3. BACLOFEN [Suspect]
  4. REQUIP [Suspect]

REACTIONS (3)
  - DRUG INTERACTION [None]
  - SOMNOLENCE [None]
  - SPEECH DISORDER [None]
